FAERS Safety Report 23092444 (Version 1)
Quarter: 2023Q4

REPORT INFORMATION
  Report Type: Spontaneous
  Country: FR (occurrence: FR)
  Receive Date: 20231021
  Receipt Date: 20231021
  Transmission Date: 20240110
  Serious: Yes (Hospitalization)
  Sender: FDA-Public Use
  Company Number: None

PATIENT

DRUGS (2)
  1. ZONISAMIDE [Suspect]
     Active Substance: ZONISAMIDE
     Dosage: 250 MG
     Route: 048
     Dates: start: 20230922, end: 20230922
  2. VALPROIC ACID [Suspect]
     Active Substance: VALPROIC ACID
     Indication: Wrong patient
     Dosage: 1 G
     Route: 048
     Dates: start: 20230922, end: 20230922

REACTIONS (4)
  - Somnolence [Recovered/Resolved]
  - Wrong patient [Recovered/Resolved]
  - Hypotension [Recovered/Resolved]
  - Vomiting [Recovered/Resolved]

NARRATIVE: CASE EVENT DATE: 20230922
